FAERS Safety Report 9451198 (Version 1)
Quarter: 2013Q3

REPORT INFORMATION
  Report Type: Report from Study
  Country: US (occurrence: US)
  Receive Date: 20130809
  Receipt Date: 20130809
  Transmission Date: 20140515
  Serious: Yes (Hospitalization)
  Sender: FDA-Public Use
  Company Number: US-ABBOTT-13P-163-1128408-00

PATIENT
  Age: 72 Year
  Sex: Female
  Weight: 53.57 kg

DRUGS (11)
  1. HUMIRA [Suspect]
     Indication: RHEUMATOID ARTHRITIS
  2. CELEBREX [Concomitant]
     Indication: RHEUMATOID ARTHRITIS
  3. PREDNISONE [Concomitant]
     Indication: RHEUMATOID ARTHRITIS
  4. METHOTREXATE [Concomitant]
     Indication: RHEUMATOID ARTHRITIS
  5. FOLIC ACID [Concomitant]
     Indication: VITAMIN SUPPLEMENTATION
  6. CALCIUM [Concomitant]
     Indication: VITAMIN SUPPLEMENTATION
  7. VITAMIN D3 [Concomitant]
     Indication: VITAMIN SUPPLEMENTATION
  8. MULTIPLE VITAMIN [Concomitant]
     Indication: VITAMIN SUPPLEMENTATION
  9. FISH OIL [Concomitant]
     Indication: SUPPLEMENTATION THERAPY
  10. OMEGA 3 [Concomitant]
     Indication: SUPPLEMENTATION THERAPY
  11. VITAMIN C [Concomitant]
     Indication: VITAMIN SUPPLEMENTATION

REACTIONS (3)
  - Delirium febrile [Recovered/Resolved]
  - Pneumonia [Recovering/Resolving]
  - Asthenia [Not Recovered/Not Resolved]
